FAERS Safety Report 6693255-4 (Version None)
Quarter: 2010Q2

REPORT INFORMATION
  Report Type: 
  Country: None (occurrence: None)
  Receive Date: 20100422
  Receipt Date: 20100417
  Transmission Date: 20101027
  Serious: Yes (Other)
  Sender: FDA-Public Use
  Company Number: US-MERCK-1004USA03035

PATIENT
  Sex: Male

DRUGS (4)
  1. ISENTRESS [Suspect]
     Route: 048
  2. LYRICA [Concomitant]
     Route: 065
  3. EMTRICITABINE [Concomitant]
     Route: 065
  4. TENOFOVIR [Concomitant]
     Route: 065

REACTIONS (5)
  - CARDIOMEGALY [None]
  - NON-HODGKIN'S LYMPHOMA [None]
  - PLEURAL EFFUSION [None]
  - PRIMARY EFFUSION LYMPHOMA [None]
  - RIGHT VENTRICULAR DYSFUNCTION [None]
